FAERS Safety Report 4310584-X (Version None)
Quarter: 2004Q1

REPORT INFORMATION
  Report Type: 
  Country: None (occurrence: None)
  Receive Date: 20040301
  Receipt Date: 20031104
  Transmission Date: 20041129
  Serious: No
  Sender: FDA-Public Use
  Company Number: WAES 0311USA00351

PATIENT
  Sex: Male

DRUGS (6)
  1. ZETIA [Suspect]
     Indication: HYPERCHOLESTEROLAEMIA
     Dosage: 10 MG/DAILY/PO
     Route: 048
     Dates: start: 20030901
  2. RAPAMUNE [Suspect]
  3. SYNTHROID [Concomitant]
  4. ZOCOR [Concomitant]
  5. PREDNISONE [Concomitant]
  6. RIFAMPIN [Concomitant]

REACTIONS (1)
  - DRUG EFFECT DECREASED [None]
